FAERS Safety Report 9271974 (Version 1)
Quarter: 2013Q2

REPORT INFORMATION
  Report Type: Spontaneous
  Country: US (occurrence: US)
  Receive Date: 20130506
  Receipt Date: 20130506
  Transmission Date: 20140414
  Serious: No
  Sender: FDA-Public Use
  Company Number: US-009507513-1305USA001355

PATIENT
  Age: 62 Year
  Sex: Male

DRUGS (1)
  1. SAPHRIS [Suspect]
     Indication: BIPOLAR DISORDER
     Dosage: 2 DF, HS (10MG/2 TABLETS AT BEDTIME)
     Route: 060
     Dates: start: 201212

REACTIONS (1)
  - Tongue ulceration [Recovering/Resolving]
